FAERS Safety Report 5620752-2 (Version None)
Quarter: 2008Q1

REPORT INFORMATION
  Report Type: 
  Country: None (occurrence: None)
  Receive Date: 20080208
  Receipt Date: 20080201
  Transmission Date: 20080703
  Serious: Yes (Other)
  Sender: FDA-Public Use
  Company Number: BR-MERCK-0802USA00729

PATIENT
  Age: 53 Year
  Sex: Female
  Weight: 36 kg

DRUGS (2)
  1. MINTEZOL [Suspect]
     Indication: SOMATIC DELUSION
     Route: 061
  2. [THERAPY UNSPECIFIED] [Concomitant]
     Route: 065

REACTIONS (3)
  - IMPETIGO [None]
  - MYOCARDIAL INFARCTION [None]
  - STEVENS-JOHNSON SYNDROME [None]
